FAERS Safety Report 6926619-1 (Version None)
Quarter: 2010Q3

REPORT INFORMATION
  Report Type: 
  Country: None (occurrence: None)
  Receive Date: 20100816
  Receipt Date: 20100525
  Transmission Date: 20110219
  Serious: No
  Sender: FDA-Public Use
  Company Number: US-ABBOTT-10P-163-0646856-00

PATIENT
  Sex: Male
  Weight: 108.96 kg

DRUGS (2)
  1. SIMCOR [Suspect]
     Indication: DYSLIPIDAEMIA
     Dosage: 500/20MG AT BED TIME
     Route: 048
     Dates: start: 20100517
  2. BLOOD PRESSURE MEDICATIONS [Concomitant]
     Indication: PRODUCT USED FOR UNKNOWN INDICATION
     Route: 048

REACTIONS (2)
  - DIZZINESS [None]
  - HEADACHE [None]
